FAERS Safety Report 19916203 (Version 1)
Quarter: 2021Q4

REPORT INFORMATION
  Report Type: Spontaneous
  Country: CN (occurrence: CN)
  Receive Date: 20211005
  Receipt Date: 20211005
  Transmission Date: 20220303
  Serious: Yes (Hospitalization)
  Sender: FDA-Public Use
  Company Number: CN-BAXTER-2021BAX024554

PATIENT
  Age: 71 Year
  Sex: Female
  Weight: 47 kg

DRUGS (8)
  1. CYCLOPHOSPHAMIDE [Suspect]
     Active Substance: CYCLOPHOSPHAMIDE
     Indication: Non-Hodgkin^s lymphoma
     Dosage: CYCLOPHOSPHAMIDE 0.8 G + NS 40 ML DAY 2
     Route: 041
     Dates: start: 20200818, end: 20200818
  2. SODIUM CHLORIDE [Suspect]
     Active Substance: SODIUM CHLORIDE
     Indication: Medication dilution
     Dosage: RITUXIMAB 550 MG + NS 550 ML DAY1
     Route: 041
     Dates: start: 20200817, end: 20200817
  3. SODIUM CHLORIDE [Suspect]
     Active Substance: SODIUM CHLORIDE
     Dosage: CYCLOPHOSPHAMIDE 0.8 G + NS 40 ML DAY2
     Route: 041
     Dates: start: 20200818, end: 20200818
  4. SODIUM CHLORIDE [Suspect]
     Active Substance: SODIUM CHLORIDE
     Dosage: VINDESINE 4 MG + NS 40 ML DAY2
     Route: 041
     Dates: start: 20200818, end: 20200818
  5. SODIUM CHLORIDE [Suspect]
     Active Substance: SODIUM CHLORIDE
     Dosage: DEXAMETHASONE 15 MG + NS 100 ML DAY2 TO DAY6
     Route: 041
     Dates: start: 20200818, end: 20200823
  6. VINDESINE [Suspect]
     Active Substance: VINDESINE
     Indication: Non-Hodgkin^s lymphoma
     Dosage: VINDESINE 4 MG + NS 40 ML DAY2
     Route: 041
     Dates: start: 20200818, end: 20200818
  7. RITUXIMAB [Suspect]
     Active Substance: RITUXIMAB
     Indication: Non-Hodgkin^s lymphoma
     Dosage: RITUXIMAB 550 MG + NS 550 ML DAY1
     Route: 041
     Dates: start: 20200817, end: 20200817
  8. DEXAMETHASONE SODIUM PHOSPHATE [Suspect]
     Active Substance: DEXAMETHASONE SODIUM PHOSPHATE
     Indication: Non-Hodgkin^s lymphoma
     Dosage: DEXAMETHASONE 15 MG + NS 100 ML DAY2 TO DAY6
     Route: 041
     Dates: start: 20200818, end: 20200823

REACTIONS (1)
  - Myelosuppression [Recovering/Resolving]

NARRATIVE: CASE EVENT DATE: 20200821
